FAERS Safety Report 11517071 (Version 1)
Quarter: 2015Q3

REPORT INFORMATION
  Report Type: Spontaneous
  Country: US (occurrence: None)
  Receive Date: 20150916
  Receipt Date: 20150916
  Transmission Date: 20151125
  Serious: Yes (Hospitalization)
  Sender: FDA-Public Use
  Company Number: None

PATIENT
  Age: 53 Year
  Sex: Male
  Weight: 140.4 kg

DRUGS (2)
  1. MORPHINE [Suspect]
     Active Substance: MORPHINE
     Dosage: MG PO
     Route: 048
     Dates: start: 20150512, end: 20150608
  2. FENTANYL. [Suspect]
     Active Substance: FENTANYL
     Dosage: MCG
     Dates: start: 20150601, end: 20150608

REACTIONS (3)
  - Fall [None]
  - Foot fracture [None]
  - Encephalitis toxic [None]

NARRATIVE: CASE EVENT DATE: 20150608
